FAERS Safety Report 12072788 (Version 2)
Quarter: 2016Q1

REPORT INFORMATION
  Report Type: Spontaneous
  Country: US (occurrence: US)
  Receive Date: 20160212
  Receipt Date: 20160302
  Transmission Date: 20160526
  Serious: No
  Sender: FDA-Public Use
  Company Number: US-PFIZER INC-2016073218

PATIENT
  Age: 49 Year
  Sex: Female

DRUGS (28)
  1. CARBOPLATIN. [Suspect]
     Active Substance: CARBOPLATIN
     Indication: TRIPLE NEGATIVE BREAST CANCER
     Dosage: UNK
  2. ABRAXANE [Suspect]
     Active Substance: PACLITAXEL
     Indication: BREAST CANCER METASTATIC
  3. ERIBULIN [Suspect]
     Active Substance: ERIBULIN
     Indication: BREAST CANCER METASTATIC
  4. CYCLOPHOSPHAMIDE. [Suspect]
     Active Substance: CYCLOPHOSPHAMIDE
     Indication: TRIPLE NEGATIVE BREAST CANCER
  5. DOCETAXEL. [Suspect]
     Active Substance: DOCETAXEL
     Indication: TRIPLE NEGATIVE BREAST CANCER
  6. DOCETAXEL. [Suspect]
     Active Substance: DOCETAXEL
     Indication: BREAST CANCER METASTATIC
  7. AROMASIN [Suspect]
     Active Substance: EXEMESTANE
     Indication: TRIPLE NEGATIVE BREAST CANCER
     Dosage: UNK
  8. AFINITOR [Suspect]
     Active Substance: EVEROLIMUS
     Indication: TRIPLE NEGATIVE BREAST CANCER
     Dosage: UNK
  9. AFINITOR [Suspect]
     Active Substance: EVEROLIMUS
     Indication: BREAST CANCER METASTATIC
  10. IXABEPILONE [Suspect]
     Active Substance: IXABEPILONE
     Indication: BREAST CANCER METASTATIC
  11. GANETESPIB [Suspect]
     Active Substance: GANETESPIB
     Indication: TRIPLE NEGATIVE BREAST CANCER
     Dosage: UNK
  12. CYCLOPHOSPHAMIDE. [Suspect]
     Active Substance: CYCLOPHOSPHAMIDE
     Indication: BREAST CANCER METASTATIC
  13. DOXORUBICIN HCL [Suspect]
     Active Substance: DOXORUBICIN HYDROCHLORIDE
     Indication: BREAST CANCER METASTATIC
  14. ABRAXANE [Suspect]
     Active Substance: PACLITAXEL
     Indication: TRIPLE NEGATIVE BREAST CANCER
     Dosage: UNK
  15. DOXIL [Suspect]
     Active Substance: DOXORUBICIN HYDROCHLORIDE
     Indication: TRIPLE NEGATIVE BREAST CANCER
     Dosage: UNK
  16. AVASTIN [Suspect]
     Active Substance: BEVACIZUMAB
     Indication: BREAST CANCER METASTATIC
  17. CARBOPLATIN. [Suspect]
     Active Substance: CARBOPLATIN
     Indication: BREAST CANCER METASTATIC
  18. ERIBULIN [Suspect]
     Active Substance: ERIBULIN
     Indication: TRIPLE NEGATIVE BREAST CANCER
     Dosage: UNK
  19. GANETESPIB [Suspect]
     Active Substance: GANETESPIB
     Indication: BREAST CANCER METASTATIC
  20. AROMASIN [Suspect]
     Active Substance: EXEMESTANE
     Indication: BREAST CANCER METASTATIC
  21. DOXORUBICIN HCL [Suspect]
     Active Substance: DOXORUBICIN HYDROCHLORIDE
     Indication: TRIPLE NEGATIVE BREAST CANCER
  22. XELODA [Suspect]
     Active Substance: CAPECITABINE
     Indication: TRIPLE NEGATIVE BREAST CANCER
     Dosage: UNK
  23. AVASTIN [Suspect]
     Active Substance: BEVACIZUMAB
     Indication: TRIPLE NEGATIVE BREAST CANCER
     Dosage: UNK
  24. GEMCITABINE HYDROCHLORIDE. [Suspect]
     Active Substance: GEMCITABINE HYDROCHLORIDE
     Indication: TRIPLE NEGATIVE BREAST CANCER
     Dosage: UNK
  25. GEMCITABINE HYDROCHLORIDE. [Suspect]
     Active Substance: GEMCITABINE HYDROCHLORIDE
     Indication: BREAST CANCER METASTATIC
  26. XELODA [Suspect]
     Active Substance: CAPECITABINE
     Indication: BREAST CANCER METASTATIC
  27. DOXIL [Suspect]
     Active Substance: DOXORUBICIN HYDROCHLORIDE
     Indication: BREAST CANCER METASTATIC
  28. IXABEPILONE [Suspect]
     Active Substance: IXABEPILONE
     Indication: TRIPLE NEGATIVE BREAST CANCER
     Dosage: UNK

REACTIONS (2)
  - Breast cancer metastatic [Unknown]
  - Disease progression [Unknown]
